FAERS Safety Report 26204007 (Version 1)
Quarter: 2025Q4

REPORT INFORMATION
  Report Type: Spontaneous
  Country: EU (occurrence: EU)
  Receive Date: 20251226
  Receipt Date: 20251226
  Transmission Date: 20260118
  Serious: Yes (Other)
  Sender: Day One Biopharmaceuticals
  Company Number: EU-IPSEN Group, Research and Development-2025-31443

PATIENT

DRUGS (1)
  1. TOVORAFENIB [Suspect]
     Active Substance: TOVORAFENIB
     Indication: Product used for unknown indication
     Route: 048

REACTIONS (1)
  - Melanocytic naevus [Unknown]
